APPROVED DRUG PRODUCT: ACETOHEXAMIDE
Active Ingredient: ACETOHEXAMIDE
Strength: 500MG
Dosage Form/Route: TABLET;ORAL
Application: A070754 | Product #001
Applicant: USL PHARMA INC
Approved: Nov 3, 1986 | RLD: No | RS: No | Type: DISCN